FAERS Safety Report 15616877 (Version 1)
Quarter: 2018Q4

REPORT INFORMATION
  Report Type: Spontaneous
  Country: GB (occurrence: GB)
  Receive Date: 20181114
  Receipt Date: 20181114
  Transmission Date: 20190205
  Serious: Yes (Hospitalization, Other)
  Sender: FDA-Public Use
  Company Number: GB-CELGENEUS-GBR-20180509859

PATIENT
  Age: 76 Year
  Sex: Male
  Weight: 70.5 kg

DRUGS (4)
  1. IXAZOMIB [Concomitant]
     Active Substance: IXAZOMIB
     Indication: PLASMA CELL MYELOMA
     Route: 065
  2. REVLIMID [Suspect]
     Active Substance: LENALIDOMIDE
     Indication: PLASMA CELL MYELOMA
     Route: 048
  3. DEXAMETHASONE. [Concomitant]
     Active Substance: DEXAMETHASONE
     Indication: PLASMA CELL MYELOMA
     Route: 065
  4. IXAZOMIB [Concomitant]
     Active Substance: IXAZOMIB
     Dosage: DOSE REDUCED
     Route: 065

REACTIONS (12)
  - Platelet count decreased [Unknown]
  - Skin lesion [Unknown]
  - Visual impairment [Unknown]
  - Diarrhoea [Not Recovered/Not Resolved]
  - Blood creatinine increased [Unknown]
  - Insomnia [Unknown]
  - Malaise [Unknown]
  - Renal impairment [Unknown]
  - Dyspnoea exertional [Unknown]
  - Weight decreased [Unknown]
  - Rash [Unknown]
  - Muscle spasms [Unknown]

NARRATIVE: CASE EVENT DATE: 20180512
